FAERS Safety Report 6457314-3 (Version None)
Quarter: 2009Q4

REPORT INFORMATION
  Report Type: 
  Country: None (occurrence: None)
  Receive Date: 20091125
  Receipt Date: 20091118
  Transmission Date: 20100525
  Serious: Yes (Hospitalization)
  Sender: FDA-Public Use
  Company Number: GXKR2007GB01057

PATIENT
  Age: 61 Year
  Sex: Female
  Weight: 55 kg

DRUGS (9)
  1. CLARITHROMYCIN [Suspect]
     Indication: CAMPYLOBACTER INFECTION
     Dosage: 500 MG, BID
     Route: 048
     Dates: start: 20060416, end: 20060422
  2. OMEPRAZOLE [Suspect]
     Indication: DUODENAL ULCER
     Dosage: 20 MG, BID
     Route: 048
     Dates: start: 20060417, end: 20060425
  3. PROTIUM [Suspect]
     Indication: DUODENAL ULCER
     Dosage: 8 MG/HOUR
     Route: 042
     Dates: start: 20060414, end: 20060417
  4. ATENOLOL [Concomitant]
     Indication: HYPERTENSION
     Dosage: 1 DF, UNK
     Route: 065
     Dates: end: 20060421
  5. HEPARIN [Concomitant]
     Indication: HEART VALVE REPLACEMENT
     Dosage: 1 DF, UNK
     Route: 065
     Dates: start: 20060416, end: 20060419
  6. LACIDIPINE [Concomitant]
     Indication: HYPERTENSION
     Dosage: 1 DF, UNK
     Route: 065
     Dates: end: 20060421
  7. LEVOTHYROXINE [Concomitant]
     Indication: HYPOTHYROIDISM
     Dosage: 200 MG, QD
     Route: 048
  8. METRONIDAZOLE [Concomitant]
     Indication: HELICOBACTER INFECTION
     Dosage: 400 MG
     Route: 048
     Dates: start: 20060416
  9. WARFARIN SODIUM [Concomitant]
     Indication: HEART VALVE REPLACEMENT
     Dosage: 1 DF, UNK
     Route: 065

REACTIONS (2)
  - BLOOD CREATININE INCREASED [None]
  - TUBULOINTERSTITIAL NEPHRITIS [None]
